FAERS Safety Report 6460428-5 (Version None)
Quarter: 2009Q4

REPORT INFORMATION
  Report Type: 
  Country: None (occurrence: None)
  Receive Date: 20091130
  Receipt Date: 20091120
  Transmission Date: 20100525
  Serious: Yes (Hospitalization)
  Sender: FDA-Public Use
  Company Number: SV-ROCHE-664594

PATIENT
  Sex: Female

DRUGS (1)
  1. CAPECITABINE [Suspect]
     Indication: BREAST CANCER
     Route: 048
     Dates: start: 20090602, end: 20091008

REACTIONS (3)
  - ASTHENIA [None]
  - DECREASED APPETITE [None]
  - SOMNOLENCE [None]
